FAERS Safety Report 13506597 (Version 1)
Quarter: 2017Q2

REPORT INFORMATION
  Report Type: Spontaneous
  Country: US (occurrence: US)
  Receive Date: 20170502
  Receipt Date: 20170502
  Transmission Date: 20170830
  Serious: Yes (Other)
  Sender: FDA-Public Use
  Company Number: US-ROCHE-1221724

PATIENT
  Age: 80 Year
  Sex: Female
  Weight: 59.02 kg

DRUGS (2)
  1. AVASTIN [Suspect]
     Active Substance: BEVACIZUMAB
     Indication: OFF LABEL USE
  2. AVASTIN [Suspect]
     Active Substance: BEVACIZUMAB
     Indication: NEOVASCULAR AGE-RELATED MACULAR DEGENERATION
     Dosage: 25 MG/ML
     Route: 050
     Dates: start: 20100105, end: 20130423

REACTIONS (5)
  - Pain [Recovering/Resolving]
  - Vitreous haemorrhage [Recovering/Resolving]
  - Inflammation [Recovering/Resolving]
  - Visual impairment [Recovering/Resolving]
  - Vision blurred [Unknown]

NARRATIVE: CASE EVENT DATE: 20130424
